FAERS Safety Report 12716254 (Version 1)
Quarter: 2016Q3

REPORT INFORMATION
  Report Type: Spontaneous
  Country: CN (occurrence: CN)
  Receive Date: 20160906
  Receipt Date: 20160906
  Transmission Date: 20161109
  Serious: Yes (Other)
  Sender: FDA-Public Use
  Company Number: CN-HQ SPECIALTY-CN-2016INT000866

PATIENT

DRUGS (2)
  1. CISPLATIN. [Suspect]
     Active Substance: CISPLATIN
     Indication: MALIGNANT BOWEL OBSTRUCTION
     Dosage: 5 MG/M2, DAILY ON DAYS 1-4 AND 8-11, Q21 DAYS
     Route: 042
  2. 5-FLUOROURACIL [Suspect]
     Active Substance: FLUOROURACIL
     Indication: MALIGNANT BOWEL OBSTRUCTION
     Dosage: 300 MG/M2, DAILY ON DAYS1-5 AND 8-12, Q21 DAYS
     Route: 042

REACTIONS (1)
  - Mucosal inflammation [Unknown]
